FAERS Safety Report 4377932-6 (Version None)
Quarter: 2004Q2

REPORT INFORMATION
  Report Type: 
  Country: None (occurrence: None)
  Receive Date: 20040616
  Receipt Date: 20040601
  Transmission Date: 20050107
  Serious: Yes (Hospitalization)
  Sender: FDA-Public Use
  Company Number: PHBS2004NZ07335

PATIENT
  Age: 28 Year
  Sex: Female
  Weight: 97 kg

DRUGS (6)
  1. CYCLOSPORINE [Suspect]
     Indication: HEART TRANSPLANT
     Route: 065
  2. PREDNISONE [Concomitant]
  3. AZATHIOPRINE [Concomitant]
  4. DILTIAZEM [Concomitant]
  5. NIFEDIPINE [Concomitant]
  6. ASPIRIN [Concomitant]
     Dosage: 100 MG/D

REACTIONS (8)
  - CAESAREAN SECTION [None]
  - DRUG EXPOSURE DURING PREGNANCY [None]
  - HYPERTENSION [None]
  - NORMAL NEWBORN [None]
  - PLACENTA PRAEVIA [None]
  - PRE-ECLAMPSIA [None]
  - PROTEINURIA [None]
  - RENAL IMPAIRMENT [None]
